FAERS Safety Report 6255780-X (Version None)
Quarter: 2009Q3

REPORT INFORMATION
  Report Type: 
  Country: None (occurrence: None)
  Receive Date: 20090702
  Receipt Date: 20090629
  Transmission Date: 20100115
  Serious: Yes (Other)
  Sender: FDA-Public Use
  Company Number: US-JNJCH-2009017918

PATIENT
  Age: 58 Year
  Sex: Male
  Weight: 108.9 kg

DRUGS (2)
  1. ROLAIDS EXTRA STRENGTH FRESHMINT [Suspect]
     Indication: HIATUS HERNIA
     Dosage: TEXT:UP TO 20 TABLETS DAILY FOR 1-1/2 YEARS
     Route: 048
  2. MIRALAX [Concomitant]
     Indication: IRRITABLE BOWEL SYNDROME
     Dosage: TEXT:A CAPFUL A DAY
     Route: 065

REACTIONS (3)
  - INTENTIONAL DRUG MISUSE [None]
  - INTESTINAL FUNCTIONAL DISORDER [None]
  - OVERDOSE [None]
